FAERS Safety Report 4951404-X (Version None)
Quarter: 2006Q1

REPORT INFORMATION
  Report Type: 
  Country: None (occurrence: None)
  Receive Date: 20060317
  Receipt Date: 20060227
  Transmission Date: 20060701
  Serious: Yes (Other)
  Sender: FDA-Public Use
  Company Number: USA050596949

PATIENT
  Age: 63 Year
  Sex: Female

DRUGS (3)
  1. FORTEO [Suspect]
     Indication: OSTEOPOROSIS
     Dosage: EACH MORNING
     Dates: start: 20050201
  2. FORTEO [Concomitant]
  3. FORTEO PEN(TERIPARATIDE)PEN DISPOSABLE [Suspect]
     Dates: end: 20050901

REACTIONS (10)
  - BACK PAIN [None]
  - BONE PAIN [None]
  - BRONCHITIS [None]
  - FACE OEDEMA [None]
  - FLUID RETENTION [None]
  - MUSCLE SPASMS [None]
  - NASOPHARYNGITIS [None]
  - NERVE BLOCK [None]
  - PHARMACEUTICAL PRODUCT COMPLAINT [None]
  - WEIGHT INCREASED [None]
